FAERS Safety Report 10558880 (Version 1)
Quarter: 2014Q4

REPORT INFORMATION
  Report Type: Spontaneous
  Country: RU (occurrence: RU)
  Receive Date: 20141031
  Receipt Date: 20141031
  Transmission Date: 20150529
  Serious: Yes (Death, Life-Threatening)
  Sender: FDA-Public Use
  Company Number: RU-ASTRAZENECA-2014SE81159

PATIENT
  Age: 59 Year
  Sex: Male
  Weight: 75 kg

DRUGS (13)
  1. HEPARIN [Concomitant]
     Active Substance: HEPARIN SODIUM
     Route: 040
     Dates: start: 20141011
  2. BRILINTA [Suspect]
     Active Substance: TICAGRELOR
     Indication: ACUTE CORONARY SYNDROME
     Route: 048
     Dates: start: 20141011
  3. CARDIOMAGNYL [Concomitant]
     Active Substance: ASPIRIN\MAGNESIUM HYDROXIDE
     Route: 048
     Dates: start: 20141011
  4. WARFARIN [Concomitant]
     Active Substance: WARFARIN
  5. CEFTRIAXONE. [Concomitant]
     Active Substance: CEFTRIAXONE
     Route: 048
     Dates: start: 20141011, end: 20141018
  6. ATORVASTATIN [Concomitant]
     Active Substance: ATORVASTATIN
     Route: 048
  7. EPINEPHRINE. [Concomitant]
     Active Substance: EPINEPHRINE
  8. DEXONA [Concomitant]
     Active Substance: DEXAMETHASONE
  9. HEPARIN [Concomitant]
     Active Substance: HEPARIN SODIUM
     Route: 041
     Dates: start: 20141018
  10. BRILINTA [Suspect]
     Active Substance: TICAGRELOR
     Indication: ACUTE CORONARY SYNDROME
     Route: 048
     Dates: start: 20141012, end: 20141018
  11. ENALAPRIL [Concomitant]
     Active Substance: ENALAPRIL
     Dates: start: 20141011, end: 20141018
  12. OMEZ [Concomitant]
     Active Substance: OMEPRAZOLE
  13. DOPAMINE [Concomitant]
     Active Substance: DOPAMINE\DOPAMINE HYDROCHLORIDE

REACTIONS (2)
  - Cardiogenic shock [Unknown]
  - Pulmonary embolism [Fatal]

NARRATIVE: CASE EVENT DATE: 20141014
